FAERS Safety Report 8509991-0 (Version None)
Quarter: 2012Q3

REPORT INFORMATION
  Report Type: 
  Country: None (occurrence: None)
  Receive Date: 20120713
  Receipt Date: 20120709
  Transmission Date: 20120928
  Serious: Yes (Life-Threatening, Hospitalization)
  Sender: FDA-Public Use
  Company Number: AU-ASTRAZENECA-2012SE47120

PATIENT
  Age: 22598 Day
  Sex: Female

DRUGS (10)
  1. FENTANYL [Suspect]
  2. PERINDOPRIL ERBUMINE [Concomitant]
  3. GLICLAZIDE [Concomitant]
  4. PROPOFOL [Suspect]
     Route: 042
  5. METFORMIN HYDROCHLORIDE [Concomitant]
  6. GRANISETRON [Suspect]
  7. MIDAZOLAM [Suspect]
  8. ROCURONIUM SANDOZ [Suspect]
  9. CEFAZOLIN SODIUM [Suspect]
  10. GENTAMICIN SULFATE [Suspect]

REACTIONS (5)
  - BLOOD PRESSURE INCREASED [None]
  - HYPERTHERMIA MALIGNANT [None]
  - UROSEPSIS [None]
  - MULTI-ORGAN FAILURE [None]
  - HEART RATE INCREASED [None]
